FAERS Safety Report 9586479 (Version 2)
Quarter: 2013Q4

REPORT INFORMATION
  Report Type: Spontaneous
  Country: BR (occurrence: BR)
  Receive Date: 20131003
  Receipt Date: 20131003
  Transmission Date: 20140711
  Serious: Yes (Hospitalization, Other)
  Sender: FDA-Public Use
  Company Number: PHHY2013BR090992

PATIENT
  Sex: Female

DRUGS (4)
  1. TRILEPTAL / GP 47680 / TRI 476B [Suspect]
     Indication: BIPOLAR DISORDER
     Dosage: 1200 MG, DAILY
  2. TRILEPTAL / GP 47680 / TRI 476B [Suspect]
     Dosage: 900 MG, UNK
     Dates: start: 20130929
  3. LEXOTAN [Suspect]
     Dosage: UNK UKN, UNK
  4. ANTIBIOTICS [Suspect]
     Dosage: UNK UKN, UNK

REACTIONS (8)
  - Accident [Unknown]
  - Urinary tract infection [Unknown]
  - Infection [Unknown]
  - Cystitis [Unknown]
  - Candida infection [Unknown]
  - Memory impairment [Unknown]
  - Dizziness [Unknown]
  - Bipolar disorder [Unknown]
